FAERS Safety Report 18525165 (Version 1)
Quarter: 2020Q4

REPORT INFORMATION
  Report Type: Other
  Country: CA (occurrence: CA)
  Receive Date: 20201120
  Receipt Date: 20201120
  Transmission Date: 20210114
  Serious: Yes (Hospitalization)
  Sender: FDA-Public Use
  Company Number: CA-CELLTRION INC.-2020CA031591

PATIENT

DRUGS (5)
  1. GABAPENTIN. [Concomitant]
     Active Substance: GABAPENTIN
  2. CALCIUM [Concomitant]
     Active Substance: CALCIUM
  3. RITUXIMAB (UNKNOWN) [Suspect]
     Active Substance: RITUXIMAB
     Indication: NEUROMYELITIS OPTICA SPECTRUM DISORDER
     Dosage: FREQUENCY: 1 EVERY 15 DAYS
     Route: 041
  4. MYCOPHENOLATE MOFETIL. [Suspect]
     Active Substance: MYCOPHENOLATE MOFETIL
     Indication: NEUROMYELITIS OPTICA SPECTRUM DISORDER
     Dosage: 1 GRAM, 2 EVERY 1 DAY
     Route: 065
  5. SEPTRA [Concomitant]
     Active Substance: SULFAMETHOXAZOLE\TRIMETHOPRIM

REACTIONS (3)
  - Intentional product use issue [Unknown]
  - Off label use [Unknown]
  - Neuromyelitis optica spectrum disorder [Unknown]
